FAERS Safety Report 11795566 (Version 2)
Quarter: 2016Q1

REPORT INFORMATION
  Report Type: Spontaneous
  Country: IT (occurrence: IT)
  Receive Date: 20151202
  Receipt Date: 20160121
  Transmission Date: 20160525
  Serious: Yes (Hospitalization, Other)
  Sender: FDA-Public Use
  Company Number: IT-BRISTOL-MYERS SQUIBB COMPANY-BMS-2015-081785

PATIENT
  Age: 49 Year
  Sex: Male
  Weight: 50 kg

DRUGS (3)
  1. TARGIN [Concomitant]
     Active Substance: NALOXONE HYDROCHLORIDE\OXYCODONE HYDROCHLORIDE
     Indication: PAIN
     Dosage: 10 MG, UNK
     Route: 048
     Dates: start: 20150910, end: 20151012
  2. OPDIVO [Suspect]
     Active Substance: NIVOLUMAB
     Indication: NON-SMALL CELL LUNG CANCER
     Dosage: 3 MG/KG, QCYCLE
     Route: 042
     Dates: start: 20150924, end: 20151008
  3. ORUDIS [Concomitant]
     Active Substance: KETOPROFEN
     Indication: PAIN
     Dosage: 200 MG, UNK
     Route: 048
     Dates: start: 20150910, end: 20151012

REACTIONS (1)
  - Respiratory failure [Recovering/Resolving]

NARRATIVE: CASE EVENT DATE: 20151011
